FAERS Safety Report 9148589 (Version 1)
Quarter: 2013Q1

REPORT INFORMATION
  Report Type: Spontaneous
  Country: US (occurrence: None)
  Receive Date: 20130220
  Receipt Date: 20130220
  Transmission Date: 20140127
  Serious: Yes (Death, Other)
  Sender: FDA-Public Use
  Company Number: AUR-APL-2013-01268

PATIENT
  Age: 23 Year
  Sex: Male

DRUGS (2)
  1. ALPRAZOLAM (ALPRAZOLAM) [Suspect]
     Indication: PRODUCT USED FOR UNKNOWN INDICATION
     Route: 045
  2. METHADONE (METHADONE) [Suspect]
     Indication: PRODUCT USED FOR UNKNOWN INDICATION

REACTIONS (18)
  - Loss of consciousness [None]
  - Unresponsive to stimuli [None]
  - Pulse absent [None]
  - Dyspnoea [None]
  - Multi-organ failure [None]
  - Brain injury [None]
  - Rhabdomyolysis [None]
  - Renal failure acute [None]
  - Pupil fixed [None]
  - Coma scale abnormal [None]
  - Corneal reflex decreased [None]
  - Snoring [None]
  - Pulmonary oedema [None]
  - Cerebral cyst [None]
  - Renal disorder [None]
  - Toxicity to various agents [None]
  - Necrosis [None]
  - Nervous system disorder [None]
